FAERS Safety Report 9403298 (Version 1)
Quarter: 2013Q3

REPORT INFORMATION
  Report Type: Spontaneous
  Country: AT (occurrence: AT)
  Receive Date: 20130716
  Receipt Date: 20130716
  Transmission Date: 20140515
  Serious: Yes (Other)
  Sender: FDA-Public Use
  Company Number: AT-PFIZER INC-2013208419

PATIENT
  Age: 46 Year
  Sex: Female

DRUGS (1)
  1. LYRICA [Suspect]
     Dosage: 25 MG IN THE MORNING, 25 MG AT MIDDAY AND 150 MG IN THE EVENING
     Route: 048
     Dates: start: 20120511

REACTIONS (1)
  - Gastric bypass [Unknown]
